FAERS Safety Report 8368712 (Version 3)
Quarter: 2013Q4

REPORT INFORMATION
  Report Type: Spontaneous
  Country: BR (occurrence: BR)
  Receive Date: 20120131
  Receipt Date: 20131023
  Transmission Date: 20140711
  Serious: Yes (Other)
  Sender: FDA-Public Use
  Company Number: BR-AMGEN-BRASP2012004503

PATIENT
  Age: 62 Year
  Sex: Female
  Weight: 51 kg

DRUGS (16)
  1. ENBREL [Suspect]
     Indication: RHEUMATOID ARTHRITIS
     Dosage: 50 MG, ONCE WEEKLY
     Route: 058
     Dates: start: 2010
  2. ENBREL [Suspect]
     Indication: PSORIATIC ARTHROPATHY
     Dosage: UNK
     Route: 065
  3. ENBREL [Suspect]
     Dosage: 50 MG, ONCE WEEKLY
     Route: 065
     Dates: start: 2012
  4. ENBREL [Suspect]
     Dosage: 50 MG, EVERY 10 DAYS
     Route: 065
     Dates: start: 201302
  5. ATACAND [Concomitant]
     Indication: HYPERTENSION
     Dosage: 8, 25MG, 1X/DAY
     Dates: start: 2011
  6. SELOZOK [Concomitant]
     Dosage: 50 MG, UNK
  7. LIPITOR [Concomitant]
     Dosage: 10 MG, UNK
  8. SOMALGIN [Concomitant]
     Dosage: 81 MG, UNK
  9. VASTAREL [Concomitant]
     Dosage: 35 MG, UNK
  10. FRONTAL [Concomitant]
     Dosage: 0.5 MG, UNK
  11. LEXAPRO [Concomitant]
     Dosage: 15 MG, UNK
  12. OMEPRAZOL                          /00661201/ [Concomitant]
     Dosage: 20 MG, UNK
  13. TECNOMET                           /00113801/ [Concomitant]
     Dosage: 2.5 MG, UNK
  14. ENDOFOLIN [Concomitant]
     Dosage: 5 MG, UNK
  15. LEVOTHYROXINE [Concomitant]
     Dosage: 2.5 MG, UNK
  16. ANGIPRESS                          /00422901/ [Concomitant]
     Indication: HYPERTENSION
     Dosage: UNK
     Dates: end: 2011

REACTIONS (7)
  - Venous occlusion [Unknown]
  - Emotional disorder [Unknown]
  - Feeling abnormal [Unknown]
  - Genital herpes [Unknown]
  - Injection site haemorrhage [Unknown]
  - Injection site haematoma [Unknown]
  - Injection site pain [Unknown]
